FAERS Safety Report 4921082-4 (Version None)
Quarter: 2006Q1

REPORT INFORMATION
  Report Type: 
  Country: None (occurrence: None)
  Receive Date: 20060223
  Receipt Date: 20051004
  Transmission Date: 20060701
  Serious: Yes (Hospitalization)
  Sender: FDA-Public Use
  Company Number: US-MERCK-0510USA03999

PATIENT
  Age: 49 Year
  Sex: Male
  Weight: 82 kg

DRUGS (12)
  1. CYCLOBENZAPRINE HCL [Concomitant]
     Indication: MUSCLE RELAXANT THERAPY
     Route: 065
     Dates: start: 20020316
  2. VIOXX [Suspect]
     Indication: OSTEOARTHRITIS
     Route: 048
     Dates: start: 20000211, end: 20040930
  3. ASPIRIN [Concomitant]
     Route: 048
     Dates: start: 20040809
  4. WELLBUTRIN [Concomitant]
     Indication: EX-SMOKER
     Route: 065
     Dates: start: 20040820
  5. CELEXA [Concomitant]
     Indication: DEPRESSION
     Route: 065
     Dates: start: 20020801
  6. CELEXA [Concomitant]
     Route: 065
     Dates: start: 20020926
  7. PLAVIX [Concomitant]
     Indication: ANTICOAGULANT THERAPY
     Route: 065
     Dates: start: 20040809
  8. METOPROLOL [Concomitant]
     Route: 065
     Dates: start: 20040809, end: 20050101
  9. NITROGLYCERIN [Concomitant]
     Indication: ANGINA PECTORIS
     Route: 065
     Dates: start: 20040809
  10. PREDNISONE [Concomitant]
     Indication: RASH
     Route: 065
     Dates: start: 20040420
  11. ZOCOR [Concomitant]
     Indication: BLOOD CHOLESTEROL INCREASED
     Route: 048
     Dates: start: 20040810
  12. TRIAMCINOLONE [Concomitant]
     Indication: RASH
     Route: 065
     Dates: start: 20040420

REACTIONS (12)
  - ACUTE MYOCARDIAL INFARCTION [None]
  - ARTERIOSCLEROSIS CORONARY ARTERY [None]
  - DRUG INEFFECTIVE [None]
  - DYSLIPIDAEMIA [None]
  - FALL [None]
  - HYPERSENSITIVITY [None]
  - INFECTED CYST [None]
  - INSOMNIA [None]
  - NECK PAIN [None]
  - PAIN IN EXTREMITY [None]
  - RASH [None]
  - SHOULDER PAIN [None]
